FAERS Safety Report 5458129-5 (Version None)
Quarter: 2007Q3

REPORT INFORMATION
  Report Type: 
  Country: None (occurrence: None)
  Receive Date: 20070917
  Receipt Date: 20070910
  Transmission Date: 20080115
  Serious: Yes (Death)
  Sender: FDA-Public Use
  Company Number: 2007-03047

PATIENT
  Age: 59 Year
  Sex: Male
  Weight: 54 kg

DRUGS (16)
  1. VELCADE [Suspect]
     Indication: MULTIPLE MYELOMA
     Dosage: 1.70 MG, INTRAVENOUS; 2.00 MG, INTRAVENOUS; 1.50 MG, INTRAVENOUS; 2.00 MG, INTRAVENOUS
     Route: 042
     Dates: start: 20070206, end: 20070216
  2. VELCADE [Suspect]
     Indication: MULTIPLE MYELOMA
     Dosage: 1.70 MG, INTRAVENOUS; 2.00 MG, INTRAVENOUS; 1.50 MG, INTRAVENOUS; 2.00 MG, INTRAVENOUS
     Route: 042
     Dates: start: 20070227, end: 20070322
  3. VELCADE [Suspect]
     Indication: MULTIPLE MYELOMA
     Dosage: 1.70 MG, INTRAVENOUS; 2.00 MG, INTRAVENOUS; 1.50 MG, INTRAVENOUS; 2.00 MG, INTRAVENOUS
     Route: 042
     Dates: start: 20070326, end: 20070326
  4. VELCADE [Suspect]
     Indication: MULTIPLE MYELOMA
     Dosage: 1.70 MG, INTRAVENOUS; 2.00 MG, INTRAVENOUS; 1.50 MG, INTRAVENOUS; 2.00 MG, INTRAVENOUS
     Route: 042
     Dates: start: 20070329, end: 20070409
  5. ITRACONAZOLE [Concomitant]
  6. LOPERAMIDE HCL [Concomitant]
  7. AMARYL [Concomitant]
  8. PELTAZON (PENTAZOCINE) [Concomitant]
  9. ZOLPIDEM TARTRATE [Concomitant]
  10. PURSENNID (SENNA LEAF) [Concomitant]
  11. MUCOSTA (REBAMIPIDE) [Concomitant]
  12. BIOFERMIN R (STREPTOCOCCUS FAECALIS) [Concomitant]
  13. LEVOFLOXACIN [Concomitant]
  14. BAKTAR (SULFAMETHOXAZOLE, TRIMETHOPRIM) [Concomitant]
  15. SLOW-K [Concomitant]
  16. THALIDOMIDE [Concomitant]

REACTIONS (5)
  - CONDITION AGGRAVATED [None]
  - DIARRHOEA [None]
  - DISEASE PROGRESSION [None]
  - MALAISE [None]
  - MYELODYSPLASTIC SYNDROME [None]
